FAERS Safety Report 26161241 (Version 1)
Quarter: 2025Q4

REPORT INFORMATION
  Report Type: Spontaneous
  Country: US (occurrence: US)
  Receive Date: 20251216
  Receipt Date: 20251216
  Transmission Date: 20260117
  Serious: No
  Sender: ALVOGEN
  Company Number: US-ALVOGEN-2025096092

PATIENT
  Age: 60 Year
  Sex: Female

DRUGS (2)
  1. FENTANYL [Suspect]
     Active Substance: FENTANYL
     Indication: Pain
     Dosage: 25 MCG/H
     Route: 062
     Dates: start: 2024
  2. FENTANYL [Suspect]
     Active Substance: FENTANYL
     Indication: Pain
     Dosage: 25 MCG/H?EXP DATE: AUG-2027?RECEIVED ON 03-JAN-2025 AND OPENED ON 04-JAN-2025?ONGOING
     Route: 062

REACTIONS (2)
  - Drug ineffective [Unknown]
  - Product packaging quantity issue [Unknown]

NARRATIVE: CASE EVENT DATE: 20250104
